FAERS Safety Report 9711943 (Version 1)
Quarter: 2013Q4

REPORT INFORMATION
  Report Type: Spontaneous
  Country: US (occurrence: None)
  Receive Date: 20131125
  Receipt Date: 20131125
  Transmission Date: 20140711
  Serious: Yes (Hospitalization)
  Sender: FDA-Public Use
  Company Number: None

PATIENT
  Sex: 0

DRUGS (1)
  1. LIOTHYRONINE [Suspect]
     Dates: start: 20130914, end: 20130927

REACTIONS (7)
  - Headache [None]
  - Vomiting [None]
  - Confusional state [None]
  - Delirium [None]
  - Heart rate increased [None]
  - Tri-iodothyronine increased [None]
  - Product compounding quality issue [None]
